FAERS Safety Report 6467888-4 (Version None)
Quarter: 2009Q4

REPORT INFORMATION
  Report Type: 
  Country: None (occurrence: None)
  Receive Date: 20091202
  Receipt Date: 20081118
  Transmission Date: 20100525
  Serious: No
  Sender: FDA-Public Use
  Company Number: US-AMGEN-KDL319627

PATIENT
  Sex: Female

DRUGS (1)
  1. ENBREL [Suspect]
     Indication: PSORIASIS
     Route: 058
     Dates: start: 20081018

REACTIONS (4)
  - INJECTION SITE DISCOLOURATION [None]
  - INJECTION SITE HAEMATOMA [None]
  - INJECTION SITE PRURITUS [None]
  - INJECTION SITE WARMTH [None]
